FAERS Safety Report 11467858 (Version 1)
Quarter: 2015Q3

REPORT INFORMATION
  Report Type: Spontaneous
  Country: US (occurrence: None)
  Receive Date: 20150904
  Receipt Date: 20150904
  Transmission Date: 20151125
  Serious: Yes (Other)
  Sender: FDA-Public Use
  Company Number: None

PATIENT
  Age: 61 Year
  Sex: Female

DRUGS (1)
  1. BOTOX [Suspect]
     Active Substance: ONABOTULINUMTOXINA
     Indication: MIGRAINE WITHOUT AURA
     Dosage: EVERY 3 MONTHS
     Route: 030
     Dates: start: 20150812, end: 20150903

REACTIONS (4)
  - Asthenia [None]
  - Eye swelling [None]
  - Eyelid ptosis [None]
  - Feeling abnormal [None]

NARRATIVE: CASE EVENT DATE: 201508
